FAERS Safety Report 5609753-8 (Version None)
Quarter: 2008Q1

REPORT INFORMATION
  Report Type: 
  Country: None (occurrence: None)
  Receive Date: 20080131
  Receipt Date: 20071128
  Transmission Date: 20080703
  Serious: No
  Sender: FDA-Public Use
  Company Number: US-BAYER-200713953BCC

PATIENT
  Age: 61 Year
  Sex: Female
  Weight: 68 kg

DRUGS (3)
  1. ALEVE [Suspect]
     Indication: ARTHRALGIA
     Dosage: AS USED: 440 MG  UNIT DOSE: 220 MG
     Route: 048
  2. ATENOLOL [Concomitant]
  3. TRIFLEX [Concomitant]

REACTIONS (2)
  - DIARRHOEA [None]
  - STOMACH DISCOMFORT [None]
